FAERS Safety Report 24055684 (Version 1)
Quarter: 2024Q3

REPORT INFORMATION
  Report Type: Spontaneous
  Country: US (occurrence: US)
  Receive Date: 20240705
  Receipt Date: 20240705
  Transmission Date: 20241016
  Serious: No
  Sender: BAYER
  Company Number: US-BAYER-2024A094794

PATIENT
  Age: 68 Year
  Sex: Female

DRUGS (3)
  1. MIRALAX [Suspect]
     Active Substance: POLYETHYLENE GLYCOL 3350
     Indication: Prophylaxis
     Dosage: 1 DF, TIW
     Route: 048
  2. LOSARTAN [Concomitant]
     Active Substance: LOSARTAN
     Indication: Prophylaxis
     Dosage: 25 MG, QD; 4 YEARS AGO
     Route: 048
  3. PERCOCET [Concomitant]
     Active Substance: ACETAMINOPHEN\OXYCODONE HYDROCHLORIDE
     Indication: Prophylaxis
     Dosage: 5 MG, BID;:3-4 MONTHS
     Route: 048

REACTIONS (4)
  - Flatulence [Recovering/Resolving]
  - Abdominal distension [Recovering/Resolving]
  - Product use issue [Recovering/Resolving]
  - Frequent bowel movements [Recovering/Resolving]
